FAERS Safety Report 8204859 (Version 2)
Quarter: 2012Q4

REPORT INFORMATION
  Report Type: 
  Country: US (occurrence: US)
  Receive Date: 20111027
  Receipt Date: 20121023
  Transmission Date: 20130627
  Serious: No
  Sender: FDA-Public Use
  Company Number: US-AMGEN-USASP2010007153

PATIENT
  Age: 57 Year
  Sex: Male
  Weight: 99.77 kg

DRUGS (13)
  1. ENBREL [Suspect]
     Indication: PRODUCT USED FOR UNKNOWN INDICATION
     Dosage: 50 mg, qwk
     Route: 058
  2. XANAX [Concomitant]
     Dosage: 0.5 mg, UNK
  3. METHOTREXATE [Concomitant]
     Dosage: 2.5 mg, UNK
  4. ENALAPRIL [Concomitant]
     Dosage: 2.5 mg, UNK
  5. PRAVASTATIN [Concomitant]
     Dosage: 10 mg, UNK
  6. FOLIC ACID [Concomitant]
     Dosage: 1 mg, UNK
  7. VITAMIN E                          /00110501/ [Concomitant]
     Dosage: 200 unit, UNK
  8. PROZAC                             /00724401/ [Concomitant]
     Dosage: 20 mg, UNK
  9. HYDROCODONE W/APAP [Concomitant]
     Dosage: 5 mg, UNK
  10. HYDROCODONE W/APAP [Concomitant]
     Dosage: 500 mg, UNK
  11. PREDNISONE                         /00044702/ [Concomitant]
     Dosage: 5 mg, UNK
  12. MULTIVITAMINICO C/HIERRO C-STRESS [Concomitant]
  13. GLUCOSAMINE + CHONDROITIN [Concomitant]

REACTIONS (1)
  - Oral disorder [Unknown]
